FAERS Safety Report 21897159 (Version 1)
Quarter: 2023Q1

REPORT INFORMATION
  Report Type: Spontaneous
  Country: US (occurrence: US)
  Receive Date: 20230123
  Receipt Date: 20230123
  Transmission Date: 20230417
  Serious: No
  Sender: FDA-Public Use
  Company Number: US-JNJFOC-20230131826

PATIENT

DRUGS (1)
  1. WOMENS ROGAINE UNSCENTED [Suspect]
     Active Substance: MINOXIDIL
     Indication: Product used for unknown indication
     Route: 061

REACTIONS (5)
  - Hyperkeratosis [Recovering/Resolving]
  - Deformity [Unknown]
  - Adverse event [Unknown]
  - Application site pain [Unknown]
  - Product formulation issue [Unknown]
